FAERS Safety Report 24829000 (Version 1)
Quarter: 2025Q1

REPORT INFORMATION
  Report Type: Report from Study
  Country: US (occurrence: US)
  Receive Date: 20250110
  Receipt Date: 20250110
  Transmission Date: 20250409
  Serious: Yes (Other)
  Sender: ABBVIE
  Company Number: US-ABBVIE-6075097

PATIENT
  Age: 64 Year
  Sex: Female

DRUGS (1)
  1. RINVOQ [Suspect]
     Active Substance: UPADACITINIB
     Indication: Psoriatic arthropathy
     Route: 048
     Dates: start: 2022

REACTIONS (8)
  - Shoulder operation [Recovering/Resolving]
  - Monoplegia [Recovering/Resolving]
  - Post procedural complication [Unknown]
  - Peripheral nerve injury [Recovering/Resolving]
  - Pain [Unknown]
  - Unevaluable event [Unknown]
  - Feeling abnormal [Unknown]
  - Fatigue [Unknown]

NARRATIVE: CASE EVENT DATE: 20240901
